FAERS Safety Report 19108121 (Version 1)
Quarter: 2021Q2

REPORT INFORMATION
  Report Type: Spontaneous
  Country: US (occurrence: US)
  Receive Date: 20210408
  Receipt Date: 20210408
  Transmission Date: 20210717
  Serious: Yes (Hospitalization)
  Sender: FDA-Public Use
  Company Number: None

PATIENT
  Age: 76 Year
  Sex: Male
  Weight: 122.71 kg

DRUGS (16)
  1. ONDANSETRON. [Concomitant]
     Active Substance: ONDANSETRON
  2. TYLENOL [Concomitant]
     Active Substance: ACETAMINOPHEN
  3. SUTENT [Concomitant]
     Active Substance: SUNITINIB MALATE
  4. PROCHLORPERAZINE. [Suspect]
     Active Substance: PROCHLORPERAZINE
     Indication: NAUSEA
     Route: 048
     Dates: start: 20210318
  5. FINASTERIDE. [Concomitant]
     Active Substance: FINASTERIDE
  6. IRON [Concomitant]
     Active Substance: IRON
  7. WARFARIN [Concomitant]
     Active Substance: WARFARIN
  8. METOPROLOL. [Concomitant]
     Active Substance: METOPROLOL
  9. MULTIVITAMIN [Concomitant]
     Active Substance: VITAMINS
  10. TRIAMCINOLONE [Concomitant]
     Active Substance: TRIAMCINOLONE
  11. ATORVASTATIN [Concomitant]
     Active Substance: ATORVASTATIN
  12. PANTOPRAZOLE [Concomitant]
     Active Substance: PANTOPRAZOLE
  13. VENLAFAXINE [Concomitant]
     Active Substance: VENLAFAXINE HYDROCHLORIDE
  14. PROCHLORPERAZINE. [Suspect]
     Active Substance: PROCHLORPERAZINE
     Indication: VOMITING
     Route: 048
     Dates: start: 20210318
  15. FLUTICASONE. [Concomitant]
     Active Substance: FLUTICASONE
  16. TAMSULOSIN [Concomitant]
     Active Substance: TAMSULOSIN

REACTIONS (4)
  - Gastrointestinal disorder [None]
  - Asthenia [None]
  - Intestinal obstruction [None]
  - Vomiting [None]

NARRATIVE: CASE EVENT DATE: 20210324
